FAERS Safety Report 11540076 (Version 1)
Quarter: 2015Q3

REPORT INFORMATION
  Report Type: Other
  Country: US (occurrence: US)
  Receive Date: 20150923
  Receipt Date: 20150923
  Transmission Date: 20151125
  Serious: Yes (Life-Threatening, Hospitalization)
  Sender: FDA-Public Use
  Company Number: US-ENDO PHARMACEUTICALS INC-2015-002892

PATIENT
  Age: 44 Year
  Sex: Female

DRUGS (1)
  1. PROPYLTHIOURACIL TABLETS 50 MG [Suspect]
     Active Substance: PROPYLTHIOURACIL
     Indication: BASEDOW^S DISEASE
     Route: 065

REACTIONS (3)
  - Respiratory failure [Recovering/Resolving]
  - Vasculitis [Recovering/Resolving]
  - Pancytopenia [Recovering/Resolving]
